FAERS Safety Report 17409383 (Version 3)
Quarter: 2020Q2

REPORT INFORMATION
  Report Type: Report from Study
  Country: CA (occurrence: CA)
  Receive Date: 20200212
  Receipt Date: 20200514
  Transmission Date: 20200713
  Serious: Yes (Death, Other)
  Sender: FDA-Public Use
  Company Number: CA-TOLMAR, INC.-19CA001294

PATIENT
  Age: 78 Year
  Sex: Male

DRUGS (2)
  1. ELIGARD [Suspect]
     Active Substance: LEUPROLIDE ACETATE
     Indication: PROSTATE CANCER
     Dosage: 22.5 MG, Q 3 MONTH
     Route: 058
     Dates: start: 20190831
  2. ELIGARD [Suspect]
     Active Substance: LEUPROLIDE ACETATE
     Dosage: 22.5 MG, Q 3 MONTH
     Route: 058
     Dates: start: 20200217

REACTIONS (8)
  - Hot flush [Unknown]
  - Tinnitus [Unknown]
  - Hyperhidrosis [Unknown]
  - Death [Fatal]
  - Prostatic specific antigen increased [Unknown]
  - Dizziness [Unknown]
  - Pain in extremity [Unknown]
  - Hypotension [Unknown]

NARRATIVE: CASE EVENT DATE: 201909
